FAERS Safety Report 6398365-7 (Version None)
Quarter: 2009Q4

REPORT INFORMATION
  Report Type: 
  Country: None (occurrence: None)
  Receive Date: 20091013
  Receipt Date: 20090930
  Transmission Date: 20100525
  Serious: Yes (Other)
  Sender: FDA-Public Use
  Company Number: GB-PFIZER INC-2009275998

PATIENT
  Age: 38 Year

DRUGS (3)
  1. CHAMPIX [Suspect]
     Indication: SMOKING CESSATION THERAPY
     Dosage: 1 MG, 2X/DAY
     Route: 048
     Dates: start: 20090812, end: 20090824
  2. CITALOPRAM [Concomitant]
     Indication: DEPRESSION
     Dosage: 20 MG, UNK
     Dates: start: 20080801, end: 20090812
  3. CITALOPRAM [Concomitant]
     Dosage: 40 MG, UNK
     Dates: start: 20090812

REACTIONS (2)
  - AMNESIA [None]
  - SOMNAMBULISM [None]
